FAERS Safety Report 7693542-7 (Version None)
Quarter: 2011Q3

REPORT INFORMATION
  Report Type: 
  Country: None (occurrence: None)
  Receive Date: 20110819
  Receipt Date: 20110815
  Transmission Date: 20111222
  Serious: Yes (Hospitalization)
  Sender: FDA-Public Use
  Company Number: CA-SHIRE-ALL1-2011-02772

PATIENT
  Age: 8 Year
  Sex: Female

DRUGS (2)
  1. VYVANSE [Suspect]
     Dosage: 20 MG, UNKNOWN
     Route: 048
     Dates: end: 20110101
  2. VYVANSE [Suspect]
     Indication: PRODUCT USED FOR UNKNOWN INDICATION
     Dosage: 30 MG, 1X/DAY:QD
     Route: 048
     Dates: start: 20110101, end: 20110101

REACTIONS (1)
  - CARDIAC ARREST [None]
